FAERS Safety Report 10687247 (Version 3)
Quarter: 2015Q1

REPORT INFORMATION
  Report Type: Spontaneous
  Country: JP (occurrence: JP)
  Receive Date: 20150102
  Receipt Date: 20150120
  Transmission Date: 20150720
  Serious: Yes (Other)
  Sender: FDA-Public Use
  Company Number: JP-009507513-1412JPN011602

PATIENT
  Sex: Male

DRUGS (7)
  1. LUNESTA [Concomitant]
     Active Substance: ESZOPICLONE
  2. AMOBAN [Concomitant]
     Active Substance: ZOPICLONE
  3. MOSAPRIDE CITRATE [Concomitant]
     Active Substance: MOSAPRIDE CITRATE
  4. JZOLOFT [Concomitant]
     Active Substance: SERTRALINE HYDROCHLORIDE
  5. ROHYPNOL [Concomitant]
     Active Substance: FLUNITRAZEPAM
  6. WYPAX [Concomitant]
     Active Substance: LORAZEPAM
  7. REMERON [Suspect]
     Active Substance: MIRTAZAPINE
     Indication: DEPRESSION
     Dosage: 15 MG, QD
     Route: 048

REACTIONS (3)
  - Visual acuity reduced [Unknown]
  - Photopsia [Unknown]
  - Eye pain [Unknown]
